FAERS Safety Report 24165433 (Version 1)
Quarter: 2024Q3

REPORT INFORMATION
  Report Type: Report from Study
  Country: MX (occurrence: None)
  Receive Date: 20240802
  Receipt Date: 20240802
  Transmission Date: 20241017
  Serious: Yes (Other)
  Sender: ASTRAZENECA
  Company Number: 2021A568777

PATIENT
  Age: 53 Year
  Sex: Female
  Weight: 64 kg

DRUGS (2)
  1. SYMBICORT [Suspect]
     Active Substance: BUDESONIDE\FORMOTEROL FUMARATE DIHYDRATE
     Dosage: UNKNOWN UNKNOWN
     Route: 055
  2. APIXABAN [Concomitant]
     Active Substance: APIXABAN
     Indication: COVID-19
     Dosage: ORALLY 1 EVERY 12 HOURS
     Dates: start: 20210612, end: 20210612

REACTIONS (3)
  - Pneumonitis [Unknown]
  - Cough [Unknown]
  - Off label use [Unknown]
